FAERS Safety Report 6274054-4 (Version None)
Quarter: 2009Q3

REPORT INFORMATION
  Report Type: 
  Country: None (occurrence: None)
  Receive Date: 20090720
  Receipt Date: 20090710
  Transmission Date: 20100115
  Serious: Yes (Death)
  Sender: FDA-Public Use
  Company Number: RU-GENENTECH-286867

PATIENT
  Sex: Female

DRUGS (4)
  1. HERCEPTIN [Suspect]
     Indication: BREAST CANCER
     Dosage: UNK MG/KG, Q3W
     Route: 042
     Dates: start: 20090602
  2. AVASTIN [Suspect]
     Indication: BREAST CANCER
     Dosage: 15 MG/KG, Q3W
     Route: 042
     Dates: start: 20090602
  3. CAPECITABINE [Suspect]
     Indication: BREAST CANCER
     Dosage: 2000 MG/M2, Q14D
     Route: 048
     Dates: start: 20090602
  4. TRIMETAZIDINE [Concomitant]
     Indication: DRUG USE FOR UNKNOWN INDICATION
     Dosage: UNK
     Route: 065
     Dates: start: 20080424

REACTIONS (1)
  - DEATH [None]
